FAERS Safety Report 17353999 (Version 1)
Quarter: 2020Q1

REPORT INFORMATION
  Report Type: Spontaneous
  Country: US (occurrence: US)
  Receive Date: 20200131
  Receipt Date: 20200131
  Transmission Date: 20200409
  Serious: No
  Sender: FDA-Public Use
  Company Number: NVSC2020US022913

PATIENT
  Age: 51 Year
  Sex: Female
  Weight: 180 kg

DRUGS (9)
  1. REVLIMID [Suspect]
     Active Substance: LENALIDOMIDE
     Dosage: 15 UNK (21 IN 28 DAYS)
     Route: 048
     Dates: start: 201902
  2. ZOFRAN [Suspect]
     Active Substance: ONDANSETRON HYDROCHLORIDE
     Indication: PRODUCT USED FOR UNKNOWN INDICATION
     Dosage: UNK
     Route: 065
     Dates: start: 20200113
  3. REVLIMID [Suspect]
     Active Substance: LENALIDOMIDE
     Dosage: 10 UNK (5MG-10MG)
     Route: 048
     Dates: start: 201604
  4. REVLIMID [Suspect]
     Active Substance: LENALIDOMIDE
     Indication: PLASMA CELL MYELOMA
     Dosage: 25 MG, QD
     Route: 048
     Dates: start: 201407
  5. REVLIMID [Suspect]
     Active Substance: LENALIDOMIDE
     Dosage: 15 MG, QD
     Route: 048
     Dates: start: 20200112
  6. DEXAMETHASONE. [Suspect]
     Active Substance: DEXAMETHASONE
     Indication: PRODUCT USED FOR UNKNOWN INDICATION
     Dosage: UNK
     Route: 065
     Dates: start: 20200113
  7. REVLIMID [Suspect]
     Active Substance: LENALIDOMIDE
     Dosage: 7.5 UNK
     Route: 048
     Dates: start: 201610
  8. REVLIMID [Suspect]
     Active Substance: LENALIDOMIDE
     Dosage: 10 UNK
     Route: 048
     Dates: start: 201803
  9. REVLIMID [Suspect]
     Active Substance: LENALIDOMIDE
     Dosage: 10 UNK
     Route: 048
     Dates: start: 201804

REACTIONS (2)
  - Heart rate increased [Unknown]
  - Decreased immune responsiveness [Unknown]

NARRATIVE: CASE EVENT DATE: 20200113
